FAERS Safety Report 6489774-6 (Version None)
Quarter: 2009Q4

REPORT INFORMATION
  Report Type: 
  Country: None (occurrence: None)
  Receive Date: 20091210
  Receipt Date: 20091202
  Transmission Date: 20100525
  Serious: Yes (Hospitalization)
  Sender: FDA-Public Use
  Company Number: US-ALLERGAN-0916651US

PATIENT
  Age: 97 Year
  Sex: Male

DRUGS (5)
  1. ACUVAIL [Suspect]
     Indication: DRUG USE FOR UNKNOWN INDICATION
  2. ACUVAIL [Suspect]
  3. AGGRENOX [Suspect]
     Indication: DRUG USE FOR UNKNOWN INDICATION
  4. MULTI-VITAMIN [Concomitant]
  5. IRON SUPPLEMENT [Concomitant]

REACTIONS (2)
  - CEREBROVASCULAR ACCIDENT [None]
  - OVERDOSE [None]
